FAERS Safety Report 11445349 (Version 1)
Quarter: 2015Q3

REPORT INFORMATION
  Report Type: Spontaneous
  Country: US (occurrence: None)
  Receive Date: 20150901
  Receipt Date: 20150901
  Transmission Date: 20151125
  Serious: Yes (Disabling)
  Sender: FDA-Public Use
  Company Number: None

PATIENT
  Age: 80 Year
  Sex: Female
  Weight: 43.55 kg

DRUGS (14)
  1. VITAMIN C [Concomitant]
     Active Substance: ASCORBIC ACID
  2. VITAMIN E [Concomitant]
     Active Substance: .ALPHA.-TOCOPHEROL
  3. VITAMIN B COMPLEX [Concomitant]
     Active Substance: CYANOCOBALAMIN\DEXPANTHENOL\NIACINAMIDE\PYRIDOXINE HYDROCHLORIDE\RIBOFLAVIN 5^-PHOSPHATE SODIUM\THIAMINE HYDROCHLORIDE\VITAMIN B COMPLEX
  4. VITAMIN A [Concomitant]
     Active Substance: VITAMIN A
  5. GARLIC. [Concomitant]
     Active Substance: GARLIC
  6. TAURINE [Concomitant]
     Active Substance: TAURINE
  7. CO-Q10 [Concomitant]
  8. DIFICID [Suspect]
     Active Substance: FIDAXOMICIN
     Indication: CLOSTRIDIUM DIFFICILE COLITIS
     Dosage: 1 PILL
     Route: 048
     Dates: start: 20150819, end: 20150819
  9. PRADAXA [Concomitant]
     Active Substance: DABIGATRAN ETEXILATE MESYLATE
  10. BLOOD THINNER [Concomitant]
     Active Substance: UNSPECIFIED INGREDIENT
  11. VITAMIN D3 [Concomitant]
     Active Substance: CHOLECALCIFEROL
  12. OMEGA 3 [Concomitant]
     Active Substance: OMEGA-3 FATTY ACIDS
  13. KELP [Concomitant]
     Active Substance: KELP
  14. OREGANOL [Concomitant]

REACTIONS (6)
  - Nausea [None]
  - Abasia [None]
  - Gait disturbance [None]
  - Dizziness [None]
  - Balance disorder [None]
  - Vomiting [None]

NARRATIVE: CASE EVENT DATE: 20150819
